FAERS Safety Report 6755394-9 (Version None)
Quarter: 2010Q2

REPORT INFORMATION
  Report Type: 
  Country: None (occurrence: None)
  Receive Date: 20100604
  Receipt Date: 20100524
  Transmission Date: 20101027
  Serious: Yes (Hospitalization)
  Sender: FDA-Public Use
  Company Number: IT-PFIZER INC-2006089319

PATIENT
  Age: 68 Year
  Sex: Male
  Weight: 170 kg

DRUGS (7)
  1. SUNITINIB MALATE [Suspect]
     Indication: METASTATIC RENAL CELL CARCINOMA
     Dosage: 50 MG, 1X/DAY
     Route: 048
     Dates: start: 20060309
  2. DOXAZOSIN MESYLATE [Concomitant]
     Route: 048
     Dates: start: 20051001
  3. ATORVASTATIN [Concomitant]
     Route: 048
     Dates: start: 20050323
  4. LANSOPRAZOLE [Concomitant]
     Route: 048
     Dates: start: 20060424
  5. METOPROLOL TARTRATE [Concomitant]
     Route: 048
     Dates: start: 20050323
  6. TICLOPIDINE HCL [Concomitant]
     Route: 048
     Dates: start: 20050323
  7. NITROGLICERINA [Concomitant]
     Route: 048
     Dates: start: 20050323

REACTIONS (1)
  - CHEST PAIN [None]
